FAERS Safety Report 16749589 (Version 1)
Quarter: 2019Q3

REPORT INFORMATION
  Report Type: Spontaneous
  Country: HK (occurrence: HK)
  Receive Date: 20190828
  Receipt Date: 20190828
  Transmission Date: 20191005
  Serious: Yes (Other)
  Sender: FDA-Public Use
  Company Number: HK-ACCORD-152530

PATIENT
  Age: 53 Year
  Sex: Female

DRUGS (2)
  1. CICLOSPORIN [Suspect]
     Active Substance: CYCLOSPORINE
     Indication: MYOSITIS
     Dates: start: 2011, end: 2012
  2. MYCOPHENOLIC ACID. [Suspect]
     Active Substance: MYCOPHENOLIC ACID
     Indication: MYOSITIS
     Dates: start: 2009, end: 2012

REACTIONS (7)
  - Epstein-Barr virus associated lymphoma [Unknown]
  - Herpes zoster [Unknown]
  - Smooth muscle cell neoplasm [Unknown]
  - Pneumonia bacterial [Unknown]
  - Epstein-Barr virus infection [Unknown]
  - Oral candidiasis [Unknown]
  - Off label use [Unknown]

NARRATIVE: CASE EVENT DATE: 2011
